FAERS Safety Report 21039516 (Version 8)
Quarter: 2024Q1

REPORT INFORMATION
  Report Type: Other
  Country: DE (occurrence: None)
  Receive Date: 20220704
  Receipt Date: 20240318
  Transmission Date: 20240410
  Serious: Yes (Other)
  Sender: FDA-Public Use
  Company Number: DE-ROCHE-2939101

PATIENT
  Age: 29 Year
  Sex: Male

DRUGS (4)
  1. OCREVUS [Suspect]
     Active Substance: OCRELIZUMAB
     Indication: Secondary progressive multiple sclerosis
     Dosage: THE LAST INFUSION WAS ON 13/JUL/2021
     Route: 042
     Dates: start: 20180703
  2. OCREVUS [Suspect]
     Active Substance: OCRELIZUMAB
     Indication: Progressive relapsing multiple sclerosis
     Route: 042
     Dates: start: 202311
  3. VITAMIN D3 [Concomitant]
     Active Substance: CHOLECALCIFEROL
  4. VITAMIN B12 [Concomitant]
     Active Substance: CYANOCOBALAMIN

REACTIONS (10)
  - Off label use [Unknown]
  - COVID-19 [Recovered/Resolved]
  - Visual acuity reduced [Recovered/Resolved]
  - Speech disorder [Recovered/Resolved]
  - Urinary tract infection [Recovered/Resolved]
  - Cystitis noninfective [Recovered/Resolved]
  - Fall [Unknown]
  - Skin abrasion [Recovered/Resolved]
  - Neurogenic bladder [Recovered/Resolved]
  - Asthenia [Not Recovered/Not Resolved]

NARRATIVE: CASE EVENT DATE: 20220601
